FAERS Safety Report 20393300 (Version 1)
Quarter: 2022Q1

REPORT INFORMATION
  Report Type: Spontaneous
  Country: US (occurrence: US)
  Receive Date: 20220128
  Receipt Date: 20220128
  Transmission Date: 20220423
  Serious: No
  Sender: FDA-Public Use
  Company Number: US-CELGENE-USA-20220106718

PATIENT
  Sex: Male
  Weight: 124.85 kg

DRUGS (4)
  1. REVLIMID [Suspect]
     Active Substance: LENALIDOMIDE
     Indication: Polyneuropathy
     Dosage: 10 MILLIGRAM
     Route: 048
     Dates: start: 20210526
  2. REVLIMID [Suspect]
     Active Substance: LENALIDOMIDE
     Indication: Monoclonal gammopathy
  3. REVLIMID [Suspect]
     Active Substance: LENALIDOMIDE
     Indication: Off label use
  4. POTASSIUM [Concomitant]
     Active Substance: POTASSIUM
     Indication: Product used for unknown indication
     Route: 065

REACTIONS (1)
  - Abdominal distension [Recovering/Resolving]
